FAERS Safety Report 19120690 (Version 1)
Quarter: 2021Q2

REPORT INFORMATION
  Report Type: Spontaneous
  Country: US (occurrence: US)
  Receive Date: 20210411
  Receipt Date: 20210411
  Transmission Date: 20210717
  Serious: No
  Sender: FDA-Public Use
  Company Number: None

PATIENT
  Age: 49 Year
  Sex: Female
  Weight: 53.1 kg

DRUGS (2)
  1. ESTROGEN PATCH [Concomitant]
     Active Substance: ESTRADIOL
  2. BUPRENORPHINE AND NALOXONE [Suspect]
     Active Substance: BUPRENORPHINE HYDROCHLORIDE\NALOXONE HYDROCHLORIDE
     Indication: DRUG THERAPY
     Dosage: ?          QUANTITY:1 1.5;?
     Route: 060

REACTIONS (5)
  - Product substitution issue [None]
  - Oral mucosal blistering [None]
  - Headache [None]
  - Vision blurred [None]
  - Malaise [None]
